FAERS Safety Report 7044498-1 (Version None)
Quarter: 2010Q4

REPORT INFORMATION
  Report Type: 
  Country: None (occurrence: None)
  Receive Date: 20101014
  Receipt Date: 20101008
  Transmission Date: 20110411
  Serious: No
  Sender: FDA-Public Use
  Company Number: US-TEVA-247036USA

PATIENT
  Sex: Female
  Weight: 62.198 kg

DRUGS (3)
  1. ALBUTEROL SULFATE AUTOHALER [Suspect]
     Indication: LUNG CYST
     Dosage: 2 PUFFS IN AM
     Route: 055
     Dates: start: 20100818, end: 20100830
  2. BECLOMETHASONE DIPROPIONATE [Suspect]
     Indication: LUNG CYST
     Dosage: 2 PUFFS IN PM
     Route: 055
     Dates: start: 20100817, end: 20100830
  3. LEVOTHYROXINE [Concomitant]

REACTIONS (1)
  - ORAL CANDIDIASIS [None]
